FAERS Safety Report 5796320-9 (Version None)
Quarter: 2008Q3

REPORT INFORMATION
  Report Type: 
  Country: None (occurrence: None)
  Receive Date: 20080701
  Receipt Date: 20080626
  Transmission Date: 20090109
  Serious: Yes (Hospitalization, Other)
  Sender: FDA-Public Use
  Company Number: US-AVENTIS-200813441US

PATIENT
  Sex: Male
  Weight: 68.04 kg

DRUGS (3)
  1. LANTUS [Suspect]
     Dosage: DOSE: 32-60
     Route: 058
     Dates: start: 20040101
  2. OPTICLIK (INSULIN INJECTION PEN) [Suspect]
     Dates: start: 20040101, end: 20080604
  3. HUMALOG [Concomitant]
     Dosage: DOSE: UNK

REACTIONS (4)
  - BLOOD GLUCOSE INCREASED [None]
  - HOSPITALISATION [None]
  - MALAISE [None]
  - ROAD TRAFFIC ACCIDENT [None]
